FAERS Safety Report 5114047-3 (Version None)
Quarter: 2006Q3

REPORT INFORMATION
  Report Type: 
  Country: None (occurrence: None)
  Receive Date: 20060925
  Receipt Date: 20060914
  Transmission Date: 20061208
  Serious: Yes (Death)
  Sender: FDA-Public Use
  Company Number: AR-MERCK-0609ARG00002

PATIENT
  Age: 68 Year
  Sex: Male

DRUGS (5)
  1. INVANZ [Suspect]
     Indication: ABDOMINAL SEPSIS
     Route: 042
     Dates: start: 20060731, end: 20060803
  2. INVANZ [Suspect]
     Indication: PANCREATITIS
     Route: 042
     Dates: start: 20060731, end: 20060803
  3. FUROSEMIDE [Concomitant]
     Indication: ABDOMINAL SEPSIS
     Route: 065
     Dates: start: 20060731, end: 20060801
  4. FUROSEMIDE [Concomitant]
     Indication: PANCREATITIS
     Route: 065
     Dates: start: 20060731, end: 20060801
  5. DOPAMINE HYDROCHLORIDE [Concomitant]
     Route: 041
     Dates: start: 20060801, end: 20060803

REACTIONS (3)
  - ABDOMINAL SEPSIS [None]
  - DEATH [None]
  - PANCREATITIS [None]
